FAERS Safety Report 7717179-6 (Version None)
Quarter: 2011Q3

REPORT INFORMATION
  Report Type: 
  Country: None (occurrence: None)
  Receive Date: 20110830
  Receipt Date: 20110104
  Transmission Date: 20111222
  Serious: No
  Sender: FDA-Public Use
  Company Number: US-BAYER-2011-002097

PATIENT
  Sex: Female

DRUGS (2)
  1. MIRENA [Suspect]
     Dosage: UNK
     Dates: start: 20100701
  2. MIRENA [Suspect]
     Indication: CONTRACEPTION
     Dosage: 20 MCG/24HR, UNK
     Route: 015
     Dates: start: 20030501, end: 20080601

REACTIONS (6)
  - DIZZINESS [None]
  - MENSTRUATION IRREGULAR [None]
  - METRORRHAGIA [None]
  - AMENORRHOEA [None]
  - VAGINAL HAEMORRHAGE [None]
  - MENORRHAGIA [None]
